FAERS Safety Report 9466544 (Version 4)
Quarter: 2013Q3

REPORT INFORMATION
  Report Type: Report from Study
  Country: US (occurrence: US)
  Receive Date: 20130820
  Receipt Date: 20130918
  Transmission Date: 20140515
  Serious: Yes (Hospitalization)
  Sender: FDA-Public Use
  Company Number: US-ACTELION-A-NJ2013-85165

PATIENT
  Age: 73 Year
  Sex: Female

DRUGS (16)
  1. TRACLEER [Suspect]
     Indication: PULMONARY ARTERIAL HYPERTENSION
     Dosage: 62.5 MG, BID
     Route: 048
     Dates: start: 201304, end: 20130606
  2. REVATIO [Concomitant]
     Dosage: 20 MG, TID
  3. BABY ASPIRIN [Concomitant]
     Dosage: 81 MG, QD
  4. DIGOXIN [Concomitant]
     Dosage: .125 MG, QD
     Dates: start: 2012
  5. METRAZOL [Concomitant]
     Dosage: 25 MG, QID
     Dates: start: 2012
  6. PROTONIX [Concomitant]
     Dosage: 40 MG, QD
  7. REQUIP [Concomitant]
     Dosage: 2 MG, BID
  8. AMITRIPTYLINE [Concomitant]
     Dosage: 100 MG, UNK
  9. XALATAN [Concomitant]
     Dosage: UNK
  10. PRAVACHOL [Concomitant]
     Dosage: 20 MG, QD
  11. RESTORIL [Concomitant]
     Dosage: 15 MG, QD
  12. XOPENEX [Concomitant]
     Dosage: 0.31 MG, TID
  13. MUCOMYST [Concomitant]
     Dosage: UNK, TID
  14. LEVOTHYROXINE [Concomitant]
     Dosage: 0.75 MG, QD
  15. HYDROXYUREA [Concomitant]
     Dosage: 500 MG, QD
  16. OXYGEN [Concomitant]
     Dosage: 3 L, PER MIN

REACTIONS (8)
  - Bronchitis [Recovered/Resolved]
  - Weight decreased [Recovered/Resolved]
  - Malaise [Unknown]
  - Fall [Recovered/Resolved]
  - Upper limb fracture [Recovered/Resolved]
  - No therapeutic response [Unknown]
  - Dyspnoea [Unknown]
  - Oxygen consumption increased [Unknown]
